FAERS Safety Report 6555172-X (Version None)
Quarter: 2010Q1

REPORT INFORMATION
  Report Type: 
  Country: None (occurrence: None)
  Receive Date: 20100126
  Receipt Date: 20100126
  Transmission Date: 20100710
  Serious: No
  Sender: FDA-Public Use
  Company Number: None

PATIENT
  Age: 71 Year
  Sex: Female
  Weight: 83.9154 kg

DRUGS (4)
  1. AMITRIPTYLINE HCL [Suspect]
     Indication: NEURALGIA
     Dosage: 1 AT BEDTIME
     Dates: start: 20091218, end: 20091231
  2. OMEPRAZOLE [Concomitant]
  3. METOPROLOL TARTRATE [Concomitant]
  4. NEURONTIN [Concomitant]

REACTIONS (11)
  - CHILLS [None]
  - CONTUSION [None]
  - DECREASED APPETITE [None]
  - DIZZINESS [None]
  - DRY MOUTH [None]
  - EPISTAXIS [None]
  - HEADACHE [None]
  - INSOMNIA [None]
  - OROPHARYNGEAL PAIN [None]
  - RESTLESSNESS [None]
  - VISION BLURRED [None]
